FAERS Safety Report 14018476 (Version 2)
Quarter: 2017Q4

REPORT INFORMATION
  Report Type: Report from Study
  Country: None (occurrence: RO)
  Receive Date: 20170928
  Receipt Date: 20171012
  Transmission Date: 20180321
  Serious: Yes (Hospitalization, Other)
  Sender: FDA-Public Use
  Company Number: RO-ABBVIE-17S-135-2110596-00

PATIENT
  Age: 68 Year
  Sex: Female
  Weight: 65 kg

DRUGS (11)
  1. VIEKIRAX [Suspect]
     Active Substance: OMBITASVIR\PARITAPREVIR\RITONAVIR
     Indication: HEPATITIS C
     Route: 048
     Dates: start: 20170701, end: 20170830
  2. ASPENTER [Concomitant]
     Active Substance: ASPIRIN
     Indication: PROPHYLAXIS
  3. EUTHYROX [Concomitant]
     Active Substance: LEVOTHYROXINE SODIUM
     Indication: HYPOTHYROIDISM
     Route: 048
  4. TERTENSIF SR [Concomitant]
     Indication: HYPERTENSION
     Route: 048
     Dates: start: 2011
  5. NEBIVOLOL. [Concomitant]
     Active Substance: NEBIVOLOL
     Indication: HYPERTENSION
     Route: 048
     Dates: start: 201706
  6. CANDESARTAN ATB [Concomitant]
     Indication: HYPERTENSION
     Route: 048
     Dates: start: 2011
  7. EXVIERA [Suspect]
     Active Substance: DASABUVIR
     Indication: HEPATIC CIRRHOSIS
  8. VIEKIRAX [Suspect]
     Active Substance: OMBITASVIR\PARITAPREVIR\RITONAVIR
     Indication: HEPATIC CIRRHOSIS
  9. EXVIERA [Suspect]
     Active Substance: DASABUVIR
     Indication: HEPATITIS C
     Route: 048
     Dates: start: 20170701, end: 20170830
  10. ASPENTER [Concomitant]
     Active Substance: ASPIRIN
     Indication: HYPERTENSION
     Route: 048
     Dates: start: 2011
  11. ATACAND [Concomitant]
     Active Substance: CANDESARTAN CILEXETIL
     Indication: HYPERTENSION
     Route: 048
     Dates: start: 2011

REACTIONS (10)
  - Depression [Recovering/Resolving]
  - Chest pain [Recovering/Resolving]
  - Chest pain [Recovered/Resolved]
  - Angina pectoris [Recovering/Resolving]
  - Panic attack [Recovering/Resolving]
  - Chest pain [Recovered/Resolved]
  - Chest pain [Recovered/Resolved]
  - Vertigo [Recovering/Resolving]
  - Hypertension [Recovering/Resolving]
  - Dyspepsia [Recovering/Resolving]

NARRATIVE: CASE EVENT DATE: 2017
